FAERS Safety Report 5151198-1 (Version None)
Quarter: 2006Q4

REPORT INFORMATION
  Report Type: 
  Country: None (occurrence: None)
  Receive Date: 20061113
  Receipt Date: 20061113
  Transmission Date: 20070319
  Serious: Yes (Hospitalization)
  Sender: FDA-Public Use
  Company Number: None

PATIENT
  Sex: Female
  Weight: 53.0709 kg

DRUGS (1)
  1. ABILIFY [Suspect]
     Indication: BIPOLAR DISORDER
     Dosage: 40 MG QPM PO
     Route: 048
     Dates: start: 20060912, end: 20060922

REACTIONS (5)
  - BACK PAIN [None]
  - HYPOTHERMIA [None]
  - IRRITABILITY [None]
  - LETHARGY [None]
  - PNEUMONIA [None]
